FAERS Safety Report 14371938 (Version 2)
Quarter: 2018Q1

REPORT INFORMATION
  Report Type: Spontaneous
  Country: PL (occurrence: PL)
  Receive Date: 20180110
  Receipt Date: 20180228
  Transmission Date: 20180509
  Serious: Yes (Hospitalization)
  Sender: FDA-Public Use
  Company Number: PL-MYLANLABS-2018M1001934

PATIENT
  Age: 12 Year
  Sex: Female
  Weight: 32 kg

DRUGS (10)
  1. ERYTHROMYCIN. [Suspect]
     Active Substance: ERYTHROMYCIN
     Indication: KERATITIS
     Dosage: UNK
  2. CORNEREGEL [Suspect]
     Active Substance: DEXPANTHENOL
     Indication: KERATITIS
     Dosage: UNK
     Route: 061
  3. CEFUROXIME. [Suspect]
     Active Substance: CEFUROXIME
     Indication: KERATITIS
     Dosage: UNK
     Route: 042
  4. TOBREX [Suspect]
     Active Substance: TOBRAMYCIN
     Indication: KERATITIS
     Dosage: UNK
  5. INDOCOLLYRE [Suspect]
     Active Substance: INDOMETHACIN
     Indication: KERATITIS
     Dosage: UNK
  6. LOTEMAX [Suspect]
     Active Substance: LOTEPREDNOL ETABONATE
     Indication: KERATITIS
     Dosage: UNK
  7. DEXAVEN [Suspect]
     Active Substance: DEXAMETHASONE
     Indication: KERATITIS
     Dosage: UNK
  8. DIFADOL [Suspect]
     Active Substance: DICLOFENAC SODIUM
     Indication: KERATITIS
     Dosage: UNK
  9. OFTAQUIX [Suspect]
     Active Substance: LEVOFLOXACIN
     Indication: KERATITIS
     Dosage: UNK
  10. OPATANOL [Suspect]
     Active Substance: OLOPATADINE
     Indication: KERATITIS
     Dosage: UNK

REACTIONS (3)
  - Keratitis [Recovering/Resolving]
  - Disease progression [Recovering/Resolving]
  - Drug ineffective [Unknown]
